FAERS Safety Report 7505700-2 (Version None)
Quarter: 2011Q2

REPORT INFORMATION
  Report Type: 
  Country: None (occurrence: None)
  Receive Date: 20110526
  Receipt Date: 20110428
  Transmission Date: 20111010
  Serious: Yes (Life-Threatening, Hospitalization, Disabling, Other)
  Sender: FDA-Public Use
  Company Number: DK-PFIZER INC-2008090392

PATIENT
  Sex: Male

DRUGS (3)
  1. METHOTREXATE [Suspect]
     Indication: RHEUMATOID ARTHRITIS
     Dates: start: 20041001, end: 20080401
  2. ETANERCEPT [Suspect]
     Indication: RHEUMATOID ARTHRITIS
     Dates: start: 20071218, end: 20080506
  3. SULFASALAZINE [Suspect]
     Dates: start: 20010101, end: 20080101

REACTIONS (4)
  - ACUTE PHASE REACTION [None]
  - ACUTE INTERSTITIAL PNEUMONITIS [None]
  - PULMONARY FIBROSIS [None]
  - PYREXIA [None]
